FAERS Safety Report 13854535 (Version 2)
Quarter: 2017Q3

REPORT INFORMATION
  Report Type: Spontaneous
  Country: US (occurrence: US)
  Receive Date: 20170810
  Receipt Date: 20170814
  Transmission Date: 20171127
  Serious: Yes (Death, Hospitalization, Other)
  Sender: FDA-Public Use
  Company Number: US-PFIZER INC-2017342586

PATIENT
  Age: 90 Year
  Sex: Female
  Weight: 58.97 kg

DRUGS (2)
  1. XALKORI [Suspect]
     Active Substance: CRIZOTINIB
     Indication: LUNG CARCINOMA CELL TYPE UNSPECIFIED STAGE IV
     Dosage: 200 MG, 2X/DAY
     Route: 048
     Dates: start: 20170523
  2. DEXAMETHASONE. [Suspect]
     Active Substance: DEXAMETHASONE
     Indication: BRAIN OEDEMA
     Dosage: 4 MG, 3X/DAY
     Route: 048
     Dates: start: 20170714

REACTIONS (3)
  - Rectal haemorrhage [Unknown]
  - Death [Fatal]
  - Brain oedema [Unknown]
